FAERS Safety Report 6520195-3 (Version None)
Quarter: 2009Q4

REPORT INFORMATION
  Report Type: 
  Country: None (occurrence: None)
  Receive Date: 20091229
  Receipt Date: 20090422
  Transmission Date: 20100525
  Serious: No
  Sender: FDA-Public Use
  Company Number: US-KINGPHARMUSA00001-K200900484

PATIENT
  Age: 40 Year
  Sex: Male

DRUGS (8)
  1. CORGARD [Suspect]
     Indication: MITRAL VALVE PROLAPSE
     Dosage: 40 MG, QD
     Route: 048
     Dates: start: 19740101, end: 19770101
  2. CORGARD [Suspect]
     Dosage: 40 MG, BID
     Route: 048
     Dates: start: 19770101
  3. CORGARD [Suspect]
     Dosage: 60 MG, BID
     Route: 048
  4. CORGARD [Suspect]
     Dosage: 20 MG, QD
     Route: 048
     Dates: start: 19800101, end: 19800101
  5. CORGARD [Suspect]
     Dosage: 10 MG, QD
     Route: 048
     Dates: start: 19800101
  6. LIBRIUM                            /00011501/ [Concomitant]
     Indication: VENTRICULAR EXTRASYSTOLES
     Dosage: UNK
     Route: 048
     Dates: start: 19780101, end: 19790101
  7. VALIUM [Concomitant]
     Indication: VENTRICULAR EXTRASYSTOLES
     Dosage: 10 MG, QD
     Route: 048
     Dates: start: 19790101
  8. BABY ASPIRIN [Concomitant]
     Indication: VENTRICULAR EXTRASYSTOLES
     Dosage: 81 MG, QD
     Route: 048
     Dates: start: 20070101

REACTIONS (3)
  - DRUG INEFFECTIVE [None]
  - FEELING ABNORMAL [None]
  - HEART RATE DECREASED [None]
